FAERS Safety Report 12889784 (Version 2)
Quarter: 2016Q4

REPORT INFORMATION
  Report Type: Spontaneous
  Country: US (occurrence: US)
  Receive Date: 20161027
  Receipt Date: 20161027
  Transmission Date: 20170207
  Serious: No
  Sender: FDA-Public Use
  Company Number: US-TEVA-699183ACC

PATIENT
  Sex: Female

DRUGS (1)
  1. PARAGARD T 380A [Suspect]
     Active Substance: COPPER
     Dosage: INSERTED 4 TO 5 YEARS
     Route: 065

REACTIONS (4)
  - Breast tenderness [Unknown]
  - Complication associated with device [Unknown]
  - Device breakage [Unknown]
  - Muscle spasms [Unknown]
